FAERS Safety Report 9001606 (Version 1)
Quarter: 2013Q1

REPORT INFORMATION
  Report Type: Spontaneous
  Country: US (occurrence: US)
  Receive Date: 20130107
  Receipt Date: 20130107
  Transmission Date: 20140127
  Serious: Yes (Hospitalization)
  Sender: FDA-Public Use
  Company Number: US-009507513-1301USA001249

PATIENT
  Age: 69 Year
  Sex: Male

DRUGS (15)
  1. SINGULAIR [Suspect]
     Dosage: 10 MG, QD
     Route: 048
  2. LANSOPRAZOLE [Suspect]
     Dosage: 30 MG, BID
  3. OXIS [Concomitant]
  4. PREDNISOLONE [Concomitant]
  5. ALBUTEROL [Concomitant]
  6. PHYLLOCONTIN [Concomitant]
  7. PHENYTOIN SODIUM [Concomitant]
  8. SIMVASTATIN [Concomitant]
  9. PULMICORT [Concomitant]
  10. VENTOLIN (ALBUTEROL) [Concomitant]
  11. COMBIVENT [Concomitant]
  12. CALCICHEW [Concomitant]
  13. FUROSEMIDE [Concomitant]
  14. ASPIRIN [Concomitant]
  15. RAMIPRIL [Concomitant]

REACTIONS (4)
  - Muscle haemorrhage [Unknown]
  - Factor VIII deficiency [Unknown]
  - Coagulation factor decreased [Unknown]
  - Coagulopathy [Unknown]
